FAERS Safety Report 8509232-4 (Version None)
Quarter: 2012Q3

REPORT INFORMATION
  Report Type: 
  Country: None (occurrence: None)
  Receive Date: 20120713
  Receipt Date: 20120709
  Transmission Date: 20120928
  Serious: Yes (Other)
  Sender: FDA-Public Use
  Company Number: US-PFIZER INC-2012094174

PATIENT
  Sex: Female
  Weight: 154 kg

DRUGS (4)
  1. DEPO-PROVERA [Suspect]
     Indication: OFF LABEL USE
     Dosage: 150 MG, EVERY 3 MONTHS
     Route: 030
     Dates: start: 20101125
  2. HUMIRA [Concomitant]
     Indication: PSORIASIS
     Dosage: UNK
  3. SIMVASTATIN [Concomitant]
     Indication: BLOOD CHOLESTEROL INCREASED
     Dosage: UNK
  4. DEPO-PROVERA [Suspect]
     Indication: MENORRHAGIA

REACTIONS (2)
  - GLUCOSE TOLERANCE IMPAIRED [None]
  - BLOOD GLUCOSE INCREASED [None]
